FAERS Safety Report 5058913-6 (Version None)
Quarter: 2006Q2

REPORT INFORMATION
  Report Type: 
  Country: None (occurrence: None)
  Receive Date: 20060627
  Receipt Date: 20060214
  Transmission Date: 20061013
  Serious: Yes (Hospitalization)
  Sender: FDA-Public Use
  Company Number: 436658

PATIENT
  Age: 69 Year
  Sex: Female
  Weight: 41.7 kg

DRUGS (1)
  1. XELODA [Suspect]
     Indication: COLORECTAL CANCER
     Dosage: 825 MG/M2 2 PER DAY ORAL
     Route: 048
     Dates: start: 20060104, end: 20060210

REACTIONS (1)
  - TRANSAMINASES INCREASED [None]
